FAERS Safety Report 23870189 (Version 1)
Quarter: 2024Q2

REPORT INFORMATION
  Report Type: Report from Study
  Country: US (occurrence: US)
  Receive Date: 20240517
  Receipt Date: 20240517
  Transmission Date: 20240716
  Serious: Yes (Other)
  Sender: FDA-Public Use
  Company Number: US-JAZZ PHARMACEUTICALS-2024-US-007587

PATIENT
  Sex: Male
  Weight: 79.3 kg

DRUGS (1)
  1. EPIDIOLEX [Suspect]
     Active Substance: CANNABIDIOL
     Indication: Product used for unknown indication
     Dosage: 4 MILLILITER, BID
     Route: 048

REACTIONS (4)
  - Neuropathy peripheral [Unknown]
  - Paralysis [Unknown]
  - Pulmonary embolism [Unknown]
  - Depressed mood [Unknown]
